FAERS Safety Report 11107074 (Version 1)
Quarter: 2015Q2

REPORT INFORMATION
  Report Type: Spontaneous
  Country: US (occurrence: None)
  Receive Date: 20150511
  Receipt Date: 20150511
  Transmission Date: 20150821
  Serious: Yes (Other)
  Sender: FDA-Public Use
  Company Number: None

PATIENT
  Age: 56 Year
  Sex: Male
  Weight: 78.47 kg

DRUGS (5)
  1. VITAMIN C [Concomitant]
     Active Substance: ASCORBIC ACID
  2. MAGNESIUM [Concomitant]
     Active Substance: MAGNESIUM
  3. LEVOFLOXACIN 500MG ZYDUS [Suspect]
     Active Substance: LEVOFLOXACIN
     Indication: PNEUMONIA
     Dosage: 500 MG PILL ONCE DAILY TAKEN BY MOUTH
     Route: 048
     Dates: start: 20150428, end: 20150507
  4. VITAMIN B12 [Concomitant]
     Active Substance: CYANOCOBALAMIN
  5. POTASSIUM [Concomitant]
     Active Substance: POTASSIUM

REACTIONS (4)
  - Musculoskeletal pain [None]
  - Sleep disorder [None]
  - Arthralgia [None]
  - Movement disorder [None]

NARRATIVE: CASE EVENT DATE: 20150507
